FAERS Safety Report 18877775 (Version 1)
Quarter: 2021Q1

REPORT INFORMATION
  Report Type: Spontaneous
  Country: US (occurrence: US)
  Receive Date: 20210211
  Receipt Date: 20210211
  Transmission Date: 20210420
  Serious: No
  Sender: FDA-Public Use
  Company Number: US-GLAXOSMITHKLINE-US2021AMR029962

PATIENT
  Age: 52 Year
  Sex: Female

DRUGS (3)
  1. PFIZER?BIONTECH COVID?19 VACCINE [Suspect]
     Active Substance: TOZINAMERAN
     Indication: PRODUCT USED FOR UNKNOWN INDICATION
     Dosage: UNK,
     Route: 042
     Dates: start: 20210116
  2. ADVIL [Suspect]
     Active Substance: IBUPROFEN
     Indication: BACK PAIN
     Dosage: 4 DF, QD (200 MG, TABLET)
     Route: 048
  3. FLONASE [Suspect]
     Active Substance: FLUTICASONE PROPIONATE
     Indication: MULTIPLE ALLERGIES
     Dosage: UNK, BID,(50 MCG FOUR SPRAY A DAY,TWO SPRAY IN EACH NOSESTRIL )
     Route: 045

REACTIONS (5)
  - Oropharyngeal pain [Unknown]
  - Coronavirus test positive [Not Recovered/Not Resolved]
  - Nasal dryness [Unknown]
  - Asymptomatic COVID-19 [Unknown]
  - Inappropriate schedule of product administration [Unknown]

NARRATIVE: CASE EVENT DATE: 20210116
